FAERS Safety Report 8984375 (Version 2)
Quarter: 2013Q1

REPORT INFORMATION
  Report Type: Spontaneous
  Country: ES (occurrence: ES)
  Receive Date: 20121226
  Receipt Date: 20130103
  Transmission Date: 20140127
  Serious: Yes (Other)
  Sender: FDA-Public Use
  Company Number: ES-JNJFOC-20121210389

PATIENT
  Age: 54 Year
  Sex: Female

DRUGS (2)
  1. REMICADE [Suspect]
     Indication: CROHN^S DISEASE
     Dosage: 100 MG WITH DAILY DOSES OF ^375 MG BID^
     Route: 042
     Dates: start: 20080925, end: 20111128
  2. IMUREL [Interacting]
     Indication: CROHN^S DISEASE
     Route: 048
     Dates: start: 200806, end: 20121003

REACTIONS (2)
  - Myelodysplastic syndrome [Unknown]
  - Drug interaction [Unknown]
